FAERS Safety Report 18270435 (Version 1)
Quarter: 2020Q3

REPORT INFORMATION
  Report Type: Spontaneous
  Country: DK (occurrence: DK)
  Receive Date: 20200916
  Receipt Date: 20200916
  Transmission Date: 20201103
  Serious: Yes (Congenital Anomaly, Other)
  Sender: FDA-Public Use
  Company Number: DK-BRISTOL-MYERS SQUIBB COMPANY-BMS-2020-074330

PATIENT

DRUGS (1)
  1. ELIQUIS [Suspect]
     Active Substance: APIXABAN
     Indication: PRODUCT USED FOR UNKNOWN INDICATION
     Dosage: 5 MILLIGRAM, PER DAY
     Route: 064
     Dates: start: 20190720, end: 202005

REACTIONS (3)
  - Foetal exposure during pregnancy [Unknown]
  - Limb malformation [Not Recovered/Not Resolved]
  - Neuromyopathy [Not Recovered/Not Resolved]
